FAERS Safety Report 7247268-4 (Version None)
Quarter: 2011Q1

REPORT INFORMATION
  Report Type: 
  Country: None (occurrence: None)
  Receive Date: 20110127
  Receipt Date: 20110124
  Transmission Date: 20110831
  Serious: Yes (Hospitalization)
  Sender: FDA-Public Use
  Company Number: A0845439A

PATIENT
  Age: 76 Year
  Sex: Female

DRUGS (1)
  1. ADVAIR [Suspect]
     Route: 055

REACTIONS (7)
  - LEUKAEMIA [None]
  - COUGH [None]
  - DYSPNOEA [None]
  - COMPUTERISED TOMOGRAM [None]
  - MALAISE [None]
  - PNEUMONIA [None]
  - ADVERSE EVENT [None]
